FAERS Safety Report 8377883-6 (Version None)
Quarter: 2012Q2

REPORT INFORMATION
  Report Type: 
  Country: None (occurrence: None)
  Receive Date: 20120522
  Receipt Date: 20120518
  Transmission Date: 20120825
  Serious: Yes (Other)
  Sender: FDA-Public Use
  Company Number: TR-PFIZER INC-2012076722

PATIENT
  Age: 45 Year
  Sex: Male
  Weight: 67 kg

DRUGS (3)
  1. VARENICLINE TARTRATE [Suspect]
     Indication: SMOKING CESSATION THERAPY
     Dosage: UNK
  2. RAMIPRIL [Concomitant]
     Dosage: UNK
  3. METFORMIN [Concomitant]
     Dosage: UNK

REACTIONS (1)
  - HYPERTENSION [None]
